FAERS Safety Report 6966162-7 (Version None)
Quarter: 2010Q3

REPORT INFORMATION
  Report Type: 
  Country: None (occurrence: None)
  Receive Date: 20100903
  Receipt Date: 20100830
  Transmission Date: 20110219
  Serious: Yes (Hospitalization)
  Sender: FDA-Public Use
  Company Number: PHHO2010US12096

PATIENT
  Sex: Female
  Weight: 72 kg

DRUGS (5)
  1. AFINITOR [Suspect]
     Indication: GLIOBLASTOMA
     Dosage: 70 MG / WEEK
     Route: 048
     Dates: start: 20100602, end: 20100721
  2. TEMODAR [Suspect]
     Indication: GLIOBLASTOMA
     Dosage: 75 MG/M2 / DAY
     Dates: end: 20100726
  3. RADIATION [Suspect]
     Indication: GLIOBLASTOMA
  4. LEVAQUIN [Concomitant]
  5. PENTAMIDINE ISETHIONATE [Concomitant]

REACTIONS (6)
  - ASTHENIA [None]
  - CONFUSIONAL STATE [None]
  - DEEP VEIN THROMBOSIS [None]
  - NEUTROPENIA [None]
  - PERIPHERAL MOTOR NEUROPATHY [None]
  - PULMONARY EMBOLISM [None]
